FAERS Safety Report 9611105 (Version 1)
Quarter: 2013Q4

REPORT INFORMATION
  Report Type: Spontaneous
  Country: GB (occurrence: GB)
  Receive Date: 20131009
  Receipt Date: 20131009
  Transmission Date: 20140711
  Serious: Yes (Other)
  Sender: FDA-Public Use
  Company Number: GB-ROCHE-1284206

PATIENT
  Sex: Female

DRUGS (1)
  1. HERCEPTIN [Suspect]
     Indication: PRODUCT USED FOR UNKNOWN INDICATION
     Route: 065

REACTIONS (8)
  - Syncope [Unknown]
  - Contusion [Unknown]
  - Contusion [Unknown]
  - Fall [Unknown]
  - Head injury [Unknown]
  - Constipation [Unknown]
  - Malaise [Unknown]
  - Urinary tract infection [Unknown]
